FAERS Safety Report 5535419-9 (Version None)
Quarter: 2007Q4

REPORT INFORMATION
  Report Type: 
  Country: None (occurrence: None)
  Receive Date: 20071206
  Receipt Date: 20071127
  Transmission Date: 20080405
  Serious: Yes (Hospitalization)
  Sender: FDA-Public Use
  Company Number: JP-JNJFOC-20070505115

PATIENT
  Sex: Female
  Weight: 60 kg

DRUGS (31)
  1. REMICADE [Suspect]
     Route: 042
  2. REMICADE [Suspect]
     Route: 042
  3. REMICADE [Suspect]
     Route: 042
  4. REMICADE [Suspect]
     Route: 042
  5. REMICADE [Suspect]
     Route: 042
  6. REMICADE [Suspect]
     Route: 042
  7. REMICADE [Suspect]
     Route: 042
  8. REMICADE [Suspect]
     Route: 042
  9. REMICADE [Suspect]
     Route: 042
  10. REMICADE [Suspect]
     Route: 042
  11. REMICADE [Suspect]
     Route: 042
  12. REMICADE [Suspect]
     Route: 042
  13. REMICADE [Suspect]
     Route: 042
  14. REMICADE [Suspect]
     Route: 042
  15. REMICADE [Suspect]
     Route: 042
  16. REMICADE [Suspect]
     Route: 042
  17. REMICADE [Suspect]
     Route: 042
  18. REMICADE [Suspect]
     Route: 042
  19. REMICADE [Suspect]
     Indication: RHEUMATOID ARTHRITIS
     Route: 042
  20. PREDONINE [Suspect]
     Route: 048
  21. PREDONINE [Suspect]
     Route: 048
  22. PREDONINE [Suspect]
     Indication: RHEUMATOID ARTHRITIS
     Route: 048
  23. SHIOSOL [Suspect]
     Indication: RHEUMATOID ARTHRITIS
     Route: 030
  24. RHEUMATREX [Suspect]
     Route: 048
  25. RHEUMATREX [Suspect]
     Indication: RHEUMATOID ARTHRITIS
     Route: 048
  26. MOBIC [Concomitant]
     Indication: RHEUMATOID ARTHRITIS
     Route: 048
  27. MELBIN [Concomitant]
     Indication: DIABETES MELLITUS
     Route: 048
  28. OMEPRAL [Concomitant]
     Indication: REFLUX OESOPHAGITIS
     Route: 048
  29. GLYBURIDE [Concomitant]
     Indication: DIABETES MELLITUS
     Route: 048
  30. LIMETHASON [Concomitant]
     Indication: RHEUMATOID ARTHRITIS
     Route: 042
  31. FOLIAMIN [Concomitant]
     Route: 048

REACTIONS (2)
  - HERPES ZOSTER [None]
  - HERPES ZOSTER OTICUS [None]
